FAERS Safety Report 24752908 (Version 1)
Quarter: 2024Q4

REPORT INFORMATION
  Report Type: Spontaneous
  Country: US (occurrence: None)
  Receive Date: 20241219
  Receipt Date: 20241219
  Transmission Date: 20250115
  Serious: Yes (Hospitalization)
  Sender: Public
  Company Number: None

PATIENT
  Age: 63 Year
  Sex: Female
  Weight: 49 kg

DRUGS (2)
  1. GEMCITABINE HYDROCHLORIDE [Suspect]
     Active Substance: GEMCITABINE HYDROCHLORIDE
     Dates: end: 20241204
  2. PACLITAXEL [Suspect]
     Active Substance: PACLITAXEL
     Dates: end: 20241204

REACTIONS (2)
  - Haematemesis [None]
  - Abdominal pain [None]

NARRATIVE: CASE EVENT DATE: 20241217
